FAERS Safety Report 21244540 (Version 1)
Quarter: 2022Q3

REPORT INFORMATION
  Report Type: Spontaneous
  Country: AU (occurrence: None)
  Receive Date: 20220823
  Receipt Date: 20220823
  Transmission Date: 20221027
  Serious: Yes (Other)
  Sender: FDA-Public Use
  Company Number: AU-ROCHE-3165610

PATIENT

DRUGS (2)
  1. ENTRECTINIB [Suspect]
     Active Substance: ENTRECTINIB
     Indication: Product used for unknown indication
     Dosage: PRIOR TREATMENT APRIL-DEC 2021
     Route: 065
  2. CRIZOTINIB [Concomitant]
     Active Substance: CRIZOTINIB

REACTIONS (2)
  - Disease progression [Not Recovered/Not Resolved]
  - Neuropathy peripheral [Unknown]
